FAERS Safety Report 5400765-6 (Version None)
Quarter: 2007Q3

REPORT INFORMATION
  Report Type: 
  Country: None (occurrence: None)
  Receive Date: 20070726
  Receipt Date: 20070716
  Transmission Date: 20080115
  Serious: Yes (Death)
  Sender: FDA-Public Use
  Company Number: 2007US001637

PATIENT
  Age: 53 Year
  Sex: Female
  Weight: 90.7 kg

DRUGS (1)
  1. PROGRAF [Suspect]
     Dates: start: 20010101

REACTIONS (2)
  - LUNG INFECTION [None]
  - RESPIRATORY DISORDER [None]
